FAERS Safety Report 24439935 (Version 2)
Quarter: 2024Q4

REPORT INFORMATION
  Report Type: Spontaneous
  Country: TN (occurrence: TN)
  Receive Date: 20241015
  Receipt Date: 20241106
  Transmission Date: 20250115
  Serious: Yes (Other)
  Sender: BOEHRINGER INGELHEIM
  Company Number: TN-BoehringerIngelheim-2024-BI-055590

PATIENT
  Age: 76 Year

DRUGS (1)
  1. OFEV [Suspect]
     Active Substance: NINTEDANIB
     Indication: Idiopathic pulmonary fibrosis

REACTIONS (4)
  - Vascular hyalinosis [Recovering/Resolving]
  - Nephrotic syndrome [Unknown]
  - Gastrointestinal disorder [Unknown]
  - Renal failure [Unknown]
